FAERS Safety Report 12076488 (Version 4)
Quarter: 2016Q1

REPORT INFORMATION
  Report Type: Report from Study
  Country: US (occurrence: US)
  Receive Date: 20160215
  Receipt Date: 20160324
  Transmission Date: 20160526
  Serious: Yes (Hospitalization, Other)
  Sender: FDA-Public Use
  Company Number: PHHO2016US002014

PATIENT
  Age: 12 Year
  Sex: Male
  Weight: 34.9 kg

DRUGS (16)
  1. ALBUTEROL HFA [Concomitant]
     Active Substance: ALBUTEROL SULFATE
     Indication: DYSPNOEA
     Dosage: 2.5 MG, QD
     Route: 055
     Dates: start: 20160229
  2. ALBUTEROL. [Concomitant]
     Active Substance: ALBUTEROL
     Indication: PNEUMONIA
     Dosage: 2.5 MG, QID
     Route: 055
     Dates: start: 20160204
  3. LEVOFLOXACIN. [Concomitant]
     Active Substance: LEVOFLOXACIN
     Indication: PRODUCT USED FOR UNKNOWN INDICATION
     Route: 048
     Dates: start: 20160105, end: 20160119
  4. TOBI PODHALER [Suspect]
     Active Substance: TOBRAMYCIN
     Indication: HAEMOPTYSIS
  5. AZTREONAM. [Suspect]
     Active Substance: AZTREONAM
     Indication: PRODUCT USED FOR UNKNOWN INDICATION
     Dosage: 75 MG, TID
     Route: 055
     Dates: start: 20160201, end: 20160204
  6. DORNASE ALFA [Concomitant]
     Active Substance: DORNASE ALFA
     Indication: PROPHYLAXIS
     Dosage: 2.5 MG, QD
     Route: 055
  7. TOBI PODHALER [Suspect]
     Active Substance: TOBRAMYCIN
     Indication: INFECTIVE PULMONARY EXACERBATION OF CYSTIC FIBROSIS
  8. HYPERSAL [Concomitant]
     Indication: PROPHYLAXIS
     Dosage: 4 ML, BID
     Route: 055
     Dates: start: 20160229
  9. ALBUTEROL HFA [Concomitant]
     Active Substance: ALBUTEROL SULFATE
     Indication: WHEEZING
  10. ALBUTEROL. [Concomitant]
     Active Substance: ALBUTEROL
     Indication: PROPHYLAXIS
     Dosage: 2.5 MG, BID
     Route: 055
  11. ALBUTEROL. [Concomitant]
     Active Substance: ALBUTEROL
     Indication: HAEMOPTYSIS
     Dosage: 2.5 MG, QID
     Route: 055
     Dates: start: 20160229, end: 20160311
  12. ALBUTEROL HFA [Concomitant]
     Active Substance: ALBUTEROL SULFATE
     Indication: PROPHYLAXIS
  13. TOBI PODHALER [Suspect]
     Active Substance: TOBRAMYCIN
     Indication: PNEUMONIA
     Dosage: 300 MG, BID
     Route: 055
     Dates: start: 20160101, end: 20160128
  14. FLUTICASONE [Concomitant]
     Active Substance: FLUTICASONE\FLUTICASONE PROPIONATE
     Indication: PROPHYLAXIS
     Dosage: 2 DF(2 PUFF), BID
     Route: 055
     Dates: start: 20160229
  15. ALBUTEROL. [Concomitant]
     Active Substance: ALBUTEROL
     Indication: CYSTIC FIBROSIS LUNG
  16. ALBUTEROL. [Concomitant]
     Active Substance: ALBUTEROL
     Indication: CONDITION AGGRAVATED

REACTIONS (11)
  - Cystic fibrosis lung [Recovered/Resolved]
  - Haemoptysis [Recovered/Resolved]
  - Cystic fibrosis lung [Recovered/Resolved]
  - Condition aggravated [Recovered/Resolved]
  - International normalised ratio increased [Unknown]
  - Pneumonia [Recovered/Resolved]
  - Condition aggravated [Recovered/Resolved]
  - Cystic fibrosis [Recovered/Resolved]
  - Forced expiratory flow decreased [Unknown]
  - Product use issue [Unknown]
  - Prothrombin level increased [Unknown]

NARRATIVE: CASE EVENT DATE: 20160105
